FAERS Safety Report 18768385 (Version 2)
Quarter: 2021Q2

REPORT INFORMATION
  Report Type: Report from Study
  Country: CN (occurrence: CN)
  Receive Date: 20210121
  Receipt Date: 20210504
  Transmission Date: 20210717
  Serious: Yes (Hospitalization)
  Sender: FDA-Public Use
  Company Number: CN-ASTRAZENECA-2020SF71144

PATIENT
  Age: 18187 Day
  Sex: Female

DRUGS (42)
  1. CARBOPLATIN. [Suspect]
     Active Substance: CARBOPLATIN
     Indication: CERVIX CARCINOMA
     Route: 065
     Dates: start: 20201103, end: 20201103
  2. LIDOCAINE HYDROCHLORIDE INJECTION [Concomitant]
     Active Substance: LIDOCAINE HYDROCHLORIDE
     Indication: ANAESTHESIA
     Dosage: 5.0ML ONCE/SINGLE ADMINISTRATION
     Route: 058
     Dates: start: 20201203, end: 20201203
  3. LIDOCAINE HYDROCHLORIDE INJECTION [Concomitant]
     Active Substance: LIDOCAINE HYDROCHLORIDE
     Indication: ANAESTHESIA
     Dosage: 5.0ML ONCE/SINGLE ADMINISTRATION
     Route: 058
     Dates: start: 20201210, end: 20201210
  4. TRAMADOL HYDROCHLORIDE INJECTION [Concomitant]
     Indication: BACK PAIN
     Dosage: 1.0MG ONCE/SINGLE ADMINISTRATION
     Dates: start: 202010
  5. FUROSEMIDE INJECTION [Concomitant]
     Active Substance: FUROSEMIDE
     Indication: PROPHYLAXIS
     Dates: start: 202010
  6. LIDOCAINE HYDROCHLORIDE INJECTION [Concomitant]
     Active Substance: LIDOCAINE HYDROCHLORIDE
     Indication: HAEMATURIA
     Dosage: 5.0ML ONCE/SINGLE ADMINISTRATION
     Route: 058
     Dates: start: 20201203, end: 20201203
  7. LIDOCAINE HYDROCHLORIDE INJECTION [Concomitant]
     Active Substance: LIDOCAINE HYDROCHLORIDE
     Indication: ANAESTHESIA
     Dosage: 5.0ML ONCE/SINGLE ADMINISTRATION
     Route: 058
     Dates: start: 20201214, end: 20201214
  8. FAT EMULSION, AMINO ACIDS(17) AND GLUCOSE(11%) INJECTION [Concomitant]
     Indication: NUTRITIONAL SUPPLEMENTATION
     Dates: start: 202010
  9. RECOMBINANT HUMAN GRANULOCYTE STIMULATING FACTOR INJECTION [Concomitant]
     Indication: WHITE BLOOD CELL COUNT DECREASED
     Dosage: 300.0UG/INHAL ONCE/SINGLE ADMINISTRATION
     Route: 058
     Dates: start: 20201203, end: 20201203
  10. REDUCED GLUTATHIONE FOR INJECTION [Concomitant]
     Indication: ASPARTATE AMINOTRANSFERASE INCREASED
     Route: 042
     Dates: start: 20201125, end: 20201127
  11. LIDOCAINE HYDROCHLORIDE INJECTION [Concomitant]
     Active Substance: LIDOCAINE HYDROCHLORIDE
     Indication: HAEMATURIA
     Dosage: 5.0ML ONCE/SINGLE ADMINISTRATION
     Route: 058
     Dates: start: 20201207, end: 20201207
  12. LIDOCAINE HYDROCHLORIDE INJECTION [Concomitant]
     Active Substance: LIDOCAINE HYDROCHLORIDE
     Indication: HAEMATURIA
     Dosage: 5.0ML ONCE/SINGLE ADMINISTRATION
     Route: 058
     Dates: start: 20201210, end: 20201210
  13. LIDOCAINE HYDROCHLORIDE INJECTION [Concomitant]
     Active Substance: LIDOCAINE HYDROCHLORIDE
     Indication: BRACHYTHERAPY
     Dosage: 5.0ML ONCE/SINGLE ADMINISTRATION
     Route: 058
     Dates: start: 20201214, end: 20201214
  14. SHENG BAI HE JI(TCM) [Concomitant]
     Indication: WHITE BLOOD CELL COUNT DECREASED
     Route: 048
     Dates: start: 20201117, end: 20201123
  15. LIDOCAINE HYDROCHLORIDE INJECTION [Concomitant]
     Active Substance: LIDOCAINE HYDROCHLORIDE
     Indication: BRACHYTHERAPY
     Dosage: 5.0ML ONCE/SINGLE ADMINISTRATION
     Route: 058
     Dates: start: 20201210, end: 20201210
  16. FERROUS SUCCINATE ORAL SOLUTION. [Concomitant]
     Indication: ANAEMIA
     Route: 048
     Dates: start: 20201110, end: 20201218
  17. CARBOPLATIN. [Suspect]
     Active Substance: CARBOPLATIN
     Indication: CERVIX CARCINOMA
     Route: 065
     Dates: start: 20201020, end: 20201020
  18. LIDOCAINE HYDROCHLORIDE INJECTION [Concomitant]
     Active Substance: LIDOCAINE HYDROCHLORIDE
     Indication: BRACHYTHERAPY
     Dosage: 5.0ML ONCE/SINGLE ADMINISTRATION
     Route: 058
     Dates: start: 20201203, end: 20201203
  19. RECOMBINANT HUMAN THROMBOPOIETIN INJECTION [Concomitant]
     Indication: PLATELET COUNT DECREASED
     Route: 058
     Dates: start: 20201114, end: 20201122
  20. SHENGBAIHEJI [Concomitant]
     Indication: LEUKOPENIA
     Route: 048
     Dates: start: 20201126, end: 20201201
  21. STUDY PROCEDURE [Suspect]
     Active Substance: INVESTIGATIONAL PRODUCT
     Indication: CERVIX CARCINOMA
     Dosage: ON 17?DEC?2020, THE SUBJECT RECEIVED THE FIFTH INTRACAVITARY RETRACTION, THE TREATMENT PROCESS WA...
     Route: 065
  22. DURVALUMAB. [Suspect]
     Active Substance: DURVALUMAB
     Indication: CERVIX CARCINOMA
     Route: 042
     Dates: start: 20201229, end: 20201229
  23. CEFTAZIDIME FOR INJECTION [Concomitant]
     Indication: INFECTION
     Dates: start: 202010
  24. RECOMBINANT HUMAN GRANULOCYTE STIMULATING FACTOR INJECTION [Concomitant]
     Indication: WHITE BLOOD CELL COUNT DECREASED
     Dosage: 300.0UG/INHAL ONCE/SINGLE ADMINISTRATION
     Route: 058
     Dates: start: 20201125, end: 20201125
  25. HEPAROLYSATE FOR INJECTION [Concomitant]
     Active Substance: MAMMAL LIVER
     Indication: ASPARTATE AMINOTRANSFERASE INCREASED
     Route: 042
     Dates: start: 20201125, end: 20201127
  26. BICYCLOL TABLETS [Concomitant]
     Indication: ASPARTATE AMINOTRANSFERASE INCREASED
     Route: 048
     Dates: start: 20201124
  27. DURVALUMAB. [Suspect]
     Active Substance: DURVALUMAB
     Indication: CERVIX CARCINOMA
     Route: 042
     Dates: start: 20201019, end: 20201019
  28. DURVALUMAB. [Suspect]
     Active Substance: DURVALUMAB
     Indication: CERVIX CARCINOMA
     Route: 042
     Dates: start: 20201203, end: 20201203
  29. CARBOPLATIN. [Suspect]
     Active Substance: CARBOPLATIN
     Indication: CERVIX CARCINOMA
     Route: 065
     Dates: start: 20201027, end: 20201027
  30. LIDOCAINE HYDROCHLORIDE INJECTION [Concomitant]
     Active Substance: LIDOCAINE HYDROCHLORIDE
     Indication: HAEMATURIA
     Dosage: 5.0ML ONCE/SINGLE ADMINISTRATION
     Route: 058
     Dates: start: 20201214, end: 20201214
  31. OMEPRAZOLE SODIUM FOR INJECTION [Concomitant]
     Indication: PROPHYLAXIS
     Dates: start: 202010
  32. RECOMBINANT HUMAN GRANULOCYTE STIMULATING FACTOR INJECTION [Concomitant]
     Indication: WHITE BLOOD CELL COUNT DECREASED
     Dosage: 300.0UG/INHAL ONCE/SINGLE ADMINISTRATION
     Route: 058
     Dates: start: 20201202, end: 20201202
  33. FERROUS SUCCINATE ORAL LIQUID [Concomitant]
     Indication: ANAEMIA
     Route: 048
     Dates: start: 20201110, end: 20201218
  34. LIDOCAINE HYDROCHLORIDE INJECTION [Concomitant]
     Active Substance: LIDOCAINE HYDROCHLORIDE
     Indication: ANAESTHESIA
     Dosage: 5.0ML ONCE/SINGLE ADMINISTRATION
     Route: 058
     Dates: start: 20201207, end: 20201207
  35. LIDOCAINE HYDROCHLORIDE INJECTION [Concomitant]
     Active Substance: LIDOCAINE HYDROCHLORIDE
     Indication: BRACHYTHERAPY
     Dosage: 5.0ML ONCE/SINGLE ADMINISTRATION
     Route: 058
     Dates: start: 20201207, end: 20201207
  36. SODIUM BICARBONATE INJECTION [Concomitant]
     Active Substance: SODIUM BICARBONATE
     Indication: URINARY TRACT DISORDER
     Dates: start: 202010
  37. POTASSIUM CHLORIDE INJECTION [Concomitant]
     Active Substance: POTASSIUM CHLORIDE
     Indication: ELECTROLYTE IMBALANCE
     Dates: start: 202010
  38. LEUCOGEN TABLETS [Concomitant]
     Indication: PLATELET COUNT DECREASED
     Route: 048
     Dates: start: 20201110, end: 20201218
  39. FU FANG ZAO FAN WAN  TCM [Concomitant]
     Indication: PLATELET COUNT DECREASED
     Route: 048
     Dates: start: 20201110, end: 20201128
  40. HEPAROLYSATE FOR INJECTION [Concomitant]
     Active Substance: MAMMAL LIVER
     Indication: ASPARTATE AMINOTRANSFERASE INCREASED
     Route: 042
     Dates: start: 20201130, end: 20201201
  41. REDUCED GLUTATHIONE FOR INJECTION [Concomitant]
     Indication: ASPARTATE AMINOTRANSFERASE INCREASED
     Route: 042
     Dates: start: 20201130, end: 20201201
  42. HUGANNINGJIAONANG TCM [Concomitant]
     Indication: ASPARTATE AMINOTRANSFERASE INCREASED
     Route: 048
     Dates: start: 20201124, end: 20201218

REACTIONS (1)
  - Haematuria [Not Recovered/Not Resolved]

NARRATIVE: CASE EVENT DATE: 20201217
